FAERS Safety Report 13256010 (Version 2)
Quarter: 2017Q1

REPORT INFORMATION
  Report Type: Spontaneous
  Country: JP (occurrence: JP)
  Receive Date: 20170221
  Receipt Date: 20170322
  Transmission Date: 20170428
  Serious: Yes (Disabling)
  Sender: FDA-Public Use
  Company Number: JP-PFIZER INC-2016481447

PATIENT
  Age: 80 Year
  Sex: Male
  Weight: 41 kg

DRUGS (3)
  1. VFEND [Suspect]
     Active Substance: VORICONAZOLE
     Indication: BRONCHOPULMONARY ASPERGILLOSIS
     Dosage: 150 MG, 1X/DAY
     Route: 048
     Dates: start: 20160927, end: 20160927
  2. VFEND [Suspect]
     Active Substance: VORICONAZOLE
     Dosage: 250 MG, DAILY (150 MG AND 100 MG EACH)
     Route: 048
     Dates: start: 20160928, end: 20160928
  3. VFEND [Suspect]
     Active Substance: VORICONAZOLE
     Dosage: 100 MG, 2X/DAY
     Route: 048
     Dates: start: 20160929, end: 20161025

REACTIONS (2)
  - Liver disorder [Not Recovered/Not Resolved]
  - Embolic stroke [Recovered/Resolved with Sequelae]

NARRATIVE: CASE EVENT DATE: 20161003
